FAERS Safety Report 21668884 (Version 3)
Quarter: 2022Q4

REPORT INFORMATION
  Report Type: Report from Study
  Country: CA (occurrence: CA)
  Receive Date: 20221201
  Receipt Date: 20221220
  Transmission Date: 20230113
  Serious: Yes (Other)
  Sender: FDA-Public Use
  Company Number: CA-SAMSUNG BIOEPIS-SB-2022-30322

PATIENT
  Age: 65 Year
  Sex: Female

DRUGS (1)
  1. HADLIMA [Suspect]
     Active Substance: ADALIMUMAB-BWWD
     Indication: Uveitis
     Dosage: 40 MG/0.8ML;
     Route: 065
     Dates: start: 20221028

REACTIONS (9)
  - Pneumonia [Not Recovered/Not Resolved]
  - Pulmonary congestion [Unknown]
  - Uveitis [Not Recovered/Not Resolved]
  - Influenza [Unknown]
  - Balance disorder [Unknown]
  - Drug ineffective [Not Recovered/Not Resolved]
  - Bedridden [Unknown]
  - Decreased appetite [Unknown]
  - Sneezing [Unknown]
